FAERS Safety Report 5004927-1 (Version None)
Quarter: 2006Q1

REPORT INFORMATION
  Report Type: 
  Country: None (occurrence: None)
  Receive Date: 20060321
  Receipt Date: 20060208
  Transmission Date: 20060701
  Serious: No
  Sender: FDA-Public Use
  Company Number: YPA20050621

PATIENT
  Age: 73 Year
  Sex: Female

DRUGS (11)
  1. VESICARE [Suspect]
     Indication: INCONTINENCE
     Dosage: 5 MG, ORAL
     Route: 048
     Dates: start: 20051026
  2. ASPIRIN [Concomitant]
  3. INDERAL LA [Concomitant]
  4. NOLVADEX [Concomitant]
  5. MULTIVITAMINS (ERGOCALCIFEROL, ASCORBIC ACID, FOLIC ACID, THIAMINE HYD [Concomitant]
  6. QUININE SULFATE [Concomitant]
  7. FLURAZEPAM [Concomitant]
  8. CETIA [Concomitant]
  9. PRILOSEC (PRILOSEC) [Concomitant]
  10. MYSOLINE [Concomitant]
  11. BACTRIM DS [Concomitant]

REACTIONS (4)
  - DRUG INEFFECTIVE [None]
  - DRY MOUTH [None]
  - POLLAKIURIA [None]
  - URINARY TRACT INFECTION [None]
